FAERS Safety Report 14326360 (Version 1)
Quarter: 2017Q4

REPORT INFORMATION
  Report Type: Spontaneous
  Country: US (occurrence: US)
  Receive Date: 20171227
  Receipt Date: 20171227
  Transmission Date: 20180321
  Serious: No
  Sender: FDA-Public Use
  Company Number: US-B.I. PHARMACEUTICALS,INC./RIDGEFIELD-2017-BI-067793

PATIENT
  Age: 58 Year
  Sex: Female

DRUGS (2)
  1. OFEV [Suspect]
     Active Substance: NINTEDANIB
     Indication: IDIOPATHIC PULMONARY FIBROSIS
     Dosage: BID;  FORM STRENGTH: 150 MG; FORMULATION: CAPSULE?ACTION(S) TAKEN WITH PRODUCT: DRUG REDUCED
     Route: 048
     Dates: start: 201701
  2. OFEV [Suspect]
     Active Substance: NINTEDANIB
     Dosage: BID;  FORM STRENGTH: 100 MG; FORMULATION: CAP ACTION(S) TAKEN WITH PRODUCT: DOSE NOT CHANGED
     Route: 048
     Dates: start: 201711

REACTIONS (3)
  - Alopecia [Unknown]
  - Diarrhoea [Recovered/Resolved]
  - Trichorrhexis [Unknown]

NARRATIVE: CASE EVENT DATE: 201701
